FAERS Safety Report 16216077 (Version 1)
Quarter: 2019Q2

REPORT INFORMATION
  Report Type: Spontaneous
  Country: IN (occurrence: IN)
  Receive Date: 20190419
  Receipt Date: 20190419
  Transmission Date: 20190711
  Serious: Yes (Hospitalization, Other)
  Sender: FDA-Public Use
  Company Number: IN-MACLEODS PHARMACEUTICALS US LTD-MAC2019020965

PATIENT

DRUGS (4)
  1. QUETIAPINE. [Suspect]
     Active Substance: QUETIAPINE
     Dosage: 300 MILLIGRAM
  2. QUETIAPINE. [Suspect]
     Active Substance: QUETIAPINE
     Indication: BIPOLAR DISORDER
     Dosage: 50 MILLIGRAM, QD
     Route: 065
  3. LITHIUM. [Suspect]
     Active Substance: LITHIUM
     Indication: BIPOLAR DISORDER
     Dosage: 900 MILLIGRAM, QD
     Route: 065
  4. BUPROPION. [Suspect]
     Active Substance: BUPROPION
     Indication: BIPOLAR DISORDER
     Dosage: 450 MILLIGRAM, QD
     Route: 065

REACTIONS (6)
  - Withdrawal syndrome [Unknown]
  - Condition aggravated [Unknown]
  - Amputation of penis [Unknown]
  - Intentional self-injury [Unknown]
  - Suicide attempt [Unknown]
  - Therapeutic product effect incomplete [Unknown]
